FAERS Safety Report 19275117 (Version 2)
Quarter: 2021Q2

REPORT INFORMATION
  Report Type: Spontaneous
  Country: CA (occurrence: CA)
  Receive Date: 20210519
  Receipt Date: 20210602
  Transmission Date: 20210717
  Serious: Yes (Hospitalization, Other)
  Sender: FDA-Public Use
  Company Number: CA-MAYNE PHARMA-2021MYN000400

PATIENT
  Age: 17 Year
  Sex: Female

DRUGS (1)
  1. ERYTHROMYCIN. [Suspect]
     Active Substance: ERYTHROMYCIN
     Indication: OROPHARYNGEAL PAIN
     Dosage: 500 MG, QID
     Route: 048

REACTIONS (4)
  - Nausea [Unknown]
  - Food allergy [Unknown]
  - Abdominal pain upper [Unknown]
  - Urticaria [Unknown]
